FAERS Safety Report 8723607 (Version 2)
Quarter: 2013Q4

REPORT INFORMATION
  Report Type: Spontaneous
  Country: US (occurrence: US)
  Receive Date: 20120815
  Receipt Date: 20131101
  Transmission Date: 20140711
  Serious: No
  Sender: FDA-Public Use
  Company Number: US-009507513-1208USA004724

PATIENT
  Sex: Female

DRUGS (2)
  1. SAPHRIS [Suspect]
     Indication: BIPOLAR DISORDER
     Dosage: 15 MG, QD(ONE 10 MG IN THE EVENING AND 5 MG IN THE MORNING)
     Route: 060
  2. LYRICA [Concomitant]

REACTIONS (1)
  - Vomiting [Not Recovered/Not Resolved]
